FAERS Safety Report 17027340 (Version 1)
Quarter: 2019Q4

REPORT INFORMATION
  Report Type: Report from Study
  Country: US (occurrence: US)
  Receive Date: 20191113
  Receipt Date: 20191113
  Transmission Date: 20200122
  Serious: Yes (Hospitalization)
  Sender: FDA-Public Use
  Company Number: NVSC2019US029901

PATIENT
  Age: 63 Year
  Sex: Female
  Weight: 59.4 kg

DRUGS (4)
  1. MEROPENEM. [Concomitant]
     Active Substance: MEROPENEM
     Indication: ALLOGENIC STEM CELL TRANSPLANTATION
     Dosage: 500 MG, Q8H
     Route: 042
     Dates: start: 20190219, end: 20190222
  2. PREDNISONE. [Suspect]
     Active Substance: PREDNISONE
     Indication: ACUTE GRAFT VERSUS HOST DISEASE
     Dosage: 30 MG, BID
     Route: 048
     Dates: start: 20190215
  3. NORMAL SALINE [Concomitant]
     Active Substance: SODIUM CHLORIDE
     Indication: ALLOGENIC STEM CELL TRANSPLANTATION
     Dosage: 50 ML/HR, CONTINUOUS INFUSION
     Route: 042
     Dates: start: 20190219, end: 20190224
  4. ENOXAPARIN [Concomitant]
     Active Substance: ENOXAPARIN
     Indication: PRODUCT USED FOR UNKNOWN INDICATION
     Dosage: UNK
     Route: 065
     Dates: start: 20190130

REACTIONS (12)
  - Subcutaneous haematoma [Unknown]
  - Bacterial sepsis [Unknown]
  - Anaemia [Recovered/Resolved]
  - Confusional state [Unknown]
  - Fall [Recovering/Resolving]
  - Gait disturbance [Unknown]
  - White blood cell count increased [Unknown]
  - Roseolovirus test positive [Unknown]
  - Blood creatine phosphokinase increased [Unknown]
  - Ecchymosis [Recovering/Resolving]
  - Retroperitoneal haemorrhage [Unknown]
  - Haematoma [Unknown]

NARRATIVE: CASE EVENT DATE: 20190214
